FAERS Safety Report 12937921 (Version 1)
Quarter: 2016Q4

REPORT INFORMATION
  Report Type: Report from Study
  Country: GB (occurrence: GB)
  Receive Date: 20161114
  Receipt Date: 20161114
  Transmission Date: 20170207
  Serious: Yes (Other)
  Sender: FDA-Public Use
  Company Number: GB-CELGENEUS-GBR-2016110376

PATIENT
  Age: 72 Year

DRUGS (1)
  1. REVLIMID [Suspect]
     Active Substance: LENALIDOMIDE
     Indication: MYELODYSPLASTIC SYNDROME
     Route: 048

REACTIONS (4)
  - Renal failure [Unknown]
  - Liver disorder [Unknown]
  - Full blood count decreased [Unknown]
  - Myelodysplastic syndrome [Unknown]
